FAERS Safety Report 10462314 (Version 3)
Quarter: 2014Q4

REPORT INFORMATION
  Report Type: Spontaneous
  Country: JP (occurrence: JP)
  Receive Date: 20140918
  Receipt Date: 20141218
  Transmission Date: 20150528
  Serious: Yes (Life-Threatening)
  Sender: FDA-Public Use
  Company Number: JP-TEVA-509687ISR

PATIENT
  Age: 84 Year
  Sex: Female

DRUGS (5)
  1. ACLACINON [Suspect]
     Active Substance: ACLARUBICIN HYDROCHLORIDE
     Indication: ACUTE MYELOID LEUKAEMIA
     Dosage: 12 MILLIGRAM DAILY;
     Route: 042
     Dates: start: 20140430, end: 20140503
  2. FILGRASTIM BS INJ. ^NK^ [Suspect]
     Active Substance: FILGRASTIM
     Indication: NEUTROPENIA
     Dosage: 150 MICROGRAM/M2 DAILY;
     Route: 058
     Dates: start: 20140508, end: 20140513
  3. CYLOCIDE [Suspect]
     Active Substance: CYTARABINE
     Indication: ACUTE MYELOID LEUKAEMIA
     Dosage: 24 MILLIGRAM DAILY;
     Route: 058
     Dates: start: 20140430, end: 20140513
  4. GRANISETRON [Concomitant]
     Active Substance: GRANISETRON
     Indication: PROPHYLAXIS
     Dosage: 3 MILLIGRAM DAILY;
     Route: 042
     Dates: start: 20140430, end: 20140503
  5. FILGRASTIM BS INJ. ^NK^ [Suspect]
     Active Substance: FILGRASTIM
     Dosage: 75 MICROGRAM/M2 DAILY;
     Dates: start: 20140516, end: 20140520

REACTIONS (2)
  - Febrile neutropenia [Recovering/Resolving]
  - Pyrexia [Unknown]

NARRATIVE: CASE EVENT DATE: 20140512
